FAERS Safety Report 9213574 (Version 2)
Quarter: 2014Q1

REPORT INFORMATION
  Report Type: Spontaneous
  Country: US (occurrence: US)
  Receive Date: 20130405
  Receipt Date: 20140121
  Transmission Date: 20141002
  Serious: Yes (Hospitalization, Other)
  Sender: FDA-Public Use
  Company Number: US-BAYER-2013-040668

PATIENT
  Age: 32 Year
  Sex: Female

DRUGS (3)
  1. OCELLA [Suspect]
     Dosage: UNK
     Dates: start: 2006, end: 2009
  2. OCELLA [Suspect]
     Dosage: UNK
     Dates: start: 2010
  3. OXYCODONE [Concomitant]

REACTIONS (3)
  - Cholecystectomy [None]
  - Cholecystitis acute [None]
  - Injury [None]
